FAERS Safety Report 25422067 (Version 2)
Quarter: 2025Q2

REPORT INFORMATION
  Report Type: Spontaneous
  Country: KR (occurrence: KR)
  Receive Date: 20250611
  Receipt Date: 20250621
  Transmission Date: 20250717
  Serious: No
  Sender: ASTELLAS
  Company Number: KR-ASTELLAS-2025-AER-030689

PATIENT
  Sex: Male

DRUGS (3)
  1. MIRABEGRON [Suspect]
     Active Substance: MIRABEGRON
     Indication: Bladder cancer stage 0, with cancer in situ
     Route: 065
     Dates: start: 20240829, end: 20240903
  2. HARNAL [Suspect]
     Active Substance: TAMSULOSIN HYDROCHLORIDE
     Indication: Bladder cancer stage 0, with cancer in situ
     Route: 065
     Dates: start: 20240829, end: 20240903
  3. VESICARE [Suspect]
     Active Substance: SOLIFENACIN SUCCINATE
     Indication: Bladder cancer stage 0, with cancer in situ
     Route: 050
     Dates: start: 20240829, end: 20240903

REACTIONS (2)
  - Blood pressure increased [Unknown]
  - Product use in unapproved indication [Unknown]

NARRATIVE: CASE EVENT DATE: 20240829
